FAERS Safety Report 5758805-0 (Version None)
Quarter: 2008Q2

REPORT INFORMATION
  Report Type: 
  Country: None (occurrence: None)
  Receive Date: 20080604
  Receipt Date: 20080526
  Transmission Date: 20081010
  Serious: Yes (Disabling)
  Sender: FDA-Public Use
  Company Number: DE-PURDUE-DEU_2008_0004319

PATIENT
  Sex: Female

DRUGS (1)
  1. MST 30 MG MUNDIPHARMA [Suspect]
     Indication: CANCER PAIN
     Dosage: UNK, UNK
     Route: 048

REACTIONS (4)
  - APHASIA [None]
  - DISTURBANCE IN ATTENTION [None]
  - FATIGUE [None]
  - SENSORY LOSS [None]
